FAERS Safety Report 5299361-3 (Version None)
Quarter: 2007Q2

REPORT INFORMATION
  Report Type: 
  Country: None (occurrence: None)
  Receive Date: 20070417
  Receipt Date: 20070403
  Transmission Date: 20071010
  Serious: Yes (Hospitalization)
  Sender: FDA-Public Use
  Company Number: DE-ELI_LILLY_AND_COMPANY-DE200704000747

PATIENT
  Age: 42 Year
  Sex: Female

DRUGS (4)
  1. CYMBALTA [Suspect]
     Indication: PAIN
     Dosage: 30 MG, EACH MORNING
     Route: 048
     Dates: start: 20061127, end: 20070316
  2. AMITRIPTYLINE HCL [Concomitant]
     Dosage: 75 MG, EACH EVENING
     Route: 048
     Dates: start: 20041001, end: 20070315
  3. NOVALGIN [Concomitant]
  4. IBUPROFEN [Concomitant]

REACTIONS (8)
  - ANXIETY [None]
  - BLOOD PRESSURE FLUCTUATION [None]
  - HYPOAESTHESIA [None]
  - HYPOAESTHESIA FACIAL [None]
  - PALPITATIONS [None]
  - PARAESTHESIA [None]
  - RESTLESSNESS [None]
  - VESTIBULAR DISORDER [None]
